FAERS Safety Report 8509542-0 (Version None)
Quarter: 2012Q3

REPORT INFORMATION
  Report Type: 
  Country: None (occurrence: None)
  Receive Date: 20120713
  Receipt Date: 20120705
  Transmission Date: 20120928
  Serious: Yes (Hospitalization)
  Sender: FDA-Public Use
  Company Number: FI-BRISTOL-MYERS SQUIBB COMPANY-16742744

PATIENT
  Age: 11 Year
  Sex: Female

DRUGS (3)
  1. ORENCIA [Suspect]
     Dosage: 500MG
     Route: 042
     Dates: start: 20110603, end: 20111201
  2. ARAVA [Concomitant]
     Dosage: TAB
     Route: 048
     Dates: start: 20110501, end: 20111201
  3. NEORAL [Concomitant]
     Dosage: CAPS
     Route: 048
     Dates: start: 20100924, end: 20111201

REACTIONS (2)
  - COLITIS [None]
  - ANAEMIA [None]
